FAERS Safety Report 4733996-9 (Version None)
Quarter: 2005Q3

REPORT INFORMATION
  Report Type: 
  Country: None (occurrence: None)
  Receive Date: 20050721
  Receipt Date: 20050510
  Transmission Date: 20060218
  Serious: No
  Sender: FDA-Public Use
  Company Number: 2005SP000701

PATIENT
  Age: 44 Year
  Sex: Male
  Weight: 78.0187 kg

DRUGS (1)
  1. LUNESTA [Suspect]
     Indication: RESTLESS LEGS SYNDROME
     Dosage: 2 MG;HS;ORAL
     Route: 048
     Dates: start: 20050506, end: 20050506

REACTIONS (3)
  - DISSOCIATION [None]
  - SOMNOLENCE [None]
  - THINKING ABNORMAL [None]
